FAERS Safety Report 16683882 (Version 1)
Quarter: 2019Q3

REPORT INFORMATION
  Report Type: Spontaneous
  Country: FR (occurrence: FR)
  Receive Date: 20190808
  Receipt Date: 20190808
  Transmission Date: 20191004
  Serious: Yes (Hospitalization, Other)
  Sender: FDA-Public Use
  Company Number: FR-GLAXOSMITHKLINE-FR2019143356

PATIENT
  Age: 40 Year
  Sex: Female
  Weight: 85 kg

DRUGS (3)
  1. MALARONE [Suspect]
     Active Substance: ATOVAQUONE\PROGUANIL HYDROCHLORIDE
     Indication: MALARIA PROPHYLAXIS
     Dosage: 1 DF, QD
     Route: 048
     Dates: start: 20190525, end: 20190616
  2. SPIFEN [Suspect]
     Active Substance: IBUPROFEN
     Indication: PAIN
     Dosage: 3 DF, QD
     Route: 048
     Dates: start: 20190617, end: 20190620
  3. AUGMENTIN [Suspect]
     Active Substance: AMOXICILLIN\CLAVULANATE POTASSIUM
     Indication: PYREXIA
     Dosage: 3 DF, QD
     Route: 048
     Dates: start: 20190617, end: 20190620

REACTIONS (2)
  - Lymphopenia [Recovered/Resolved]
  - Neutropenia [Not Recovered/Not Resolved]

NARRATIVE: CASE EVENT DATE: 20190617
